FAERS Safety Report 8972763 (Version 2)
Quarter: 2013Q1

REPORT INFORMATION
  Report Type: Spontaneous
  Country: AU (occurrence: None)
  Receive Date: 20121207
  Receipt Date: 20121221
  Transmission Date: 20140127
  Serious: Yes (Hospitalization)
  Sender: FDA-Public Use
  Company Number: AUR-APL-2012-05244

PATIENT
  Age: 40 Year
  Sex: Male
  Weight: 65 kg

DRUGS (2)
  1. CEFAZOLIN [Suspect]
     Indication: PROPHYLAXIS
     Dosage: 1 GM (1 GM, 1 IN 1 D), INTRAVENOUS BOLUS?06/21/2012 - 06/21/2012
     Route: 040
     Dates: start: 20120621, end: 20120621
  2. MIDAZOLAM [Suspect]
     Indication: PROPHYLAXIS
     Route: 042
     Dates: start: 20120621, end: 20120721

REACTIONS (3)
  - Erythema [None]
  - Urticaria [None]
  - Angioedema [None]
